FAERS Safety Report 4618235-1 (Version None)
Quarter: 2005Q1

REPORT INFORMATION
  Report Type: 
  Country: None (occurrence: None)
  Receive Date: 20050323
  Receipt Date: 20050310
  Transmission Date: 20050727
  Serious: Yes (Life-Threatening, Hospitalization)
  Sender: FDA-Public Use
  Company Number: B0298976A

PATIENT
  Age: 16 Year
  Sex: Female

DRUGS (2)
  1. LAMICTAL [Suspect]
     Indication: EPILEPSY
     Dosage: 25 MG ALTERNATE DAYS ORAL
     Route: 048
  2. VALPROATE SODIUM [Concomitant]

REACTIONS (5)
  - CUTANEOUS LUPUS ERYTHEMATOSUS [None]
  - HYPOTENSION [None]
  - MENINGITIS ASEPTIC [None]
  - OLIGURIA [None]
  - PLEOCYTOSIS [None]
